FAERS Safety Report 21776446 (Version 3)
Quarter: 2023Q1

REPORT INFORMATION
  Report Type: Spontaneous
  Country: EG (occurrence: EG)
  Receive Date: 20221226
  Receipt Date: 20230110
  Transmission Date: 20230417
  Serious: Yes (Death, Hospitalization, Other)
  Sender: FDA-Public Use
  Company Number: EG-NOVOPROD-1004180

PATIENT
  Sex: Female

DRUGS (2)
  1. ACTRAPID [Suspect]
     Active Substance: INSULIN HUMAN
     Indication: Diabetes mellitus
     Dosage: 20 IU, QD (AFTER LUNCH)
     Dates: end: 20221105
  2. TRESIBA [Suspect]
     Active Substance: INSULIN DEGLUDEC
     Indication: Diabetes mellitus
     Dosage: 60 IU, QD (40 U/DAY AND 20 U/NIGHT)
     Dates: start: 2022, end: 2022

REACTIONS (12)
  - Loss of consciousness [Fatal]
  - Respiratory failure [Fatal]
  - Blood pH increased [Fatal]
  - Cardiac flutter [Fatal]
  - Coma [Fatal]
  - Pyuria [Fatal]
  - Pulmonary oedema [Fatal]
  - Hyperglycaemia [Fatal]
  - Insulin resistance [Not Recovered/Not Resolved]
  - Urinary retention [Not Recovered/Not Resolved]
  - Vomiting [Unknown]
  - Injection site fibrosis [Unknown]

NARRATIVE: CASE EVENT DATE: 20220101
